FAERS Safety Report 14572447 (Version 4)
Quarter: 2018Q2

REPORT INFORMATION
  Report Type: Spontaneous
  Country: US (occurrence: US)
  Receive Date: 20180226
  Receipt Date: 20180517
  Transmission Date: 20180711
  Serious: No
  Sender: FDA-Public Use
  Company Number: US-PFIZER INC-2018080894

PATIENT
  Age: 86 Year
  Sex: Male
  Weight: 66 kg

DRUGS (5)
  1. NORVASC [Concomitant]
     Active Substance: AMLODIPINE BESYLATE
     Dosage: 5 MG, UNK
  2. ADVIL [Suspect]
     Active Substance: IBUPROFEN
     Indication: PAIN IN EXTREMITY
     Dosage: 200 MG, AS NEEDED
     Route: 048
     Dates: end: 20180220
  3. HYDROCHLOROTHIAZIDE. [Concomitant]
     Active Substance: HYDROCHLOROTHIAZIDE
     Dosage: 12.5 MG, UNK
  4. ADVIL [Suspect]
     Active Substance: IBUPROFEN
     Indication: BACK PAIN
  5. MIDAMOR [Concomitant]
     Active Substance: AMILORIDE HYDROCHLORIDE
     Dosage: 5 MG, UNK

REACTIONS (5)
  - Throat irritation [Recovered/Resolved]
  - Oropharyngeal pain [Recovering/Resolving]
  - Productive cough [Recovered/Resolved]
  - Mass [Recovering/Resolving]
  - Product coating issue [Recovering/Resolving]

NARRATIVE: CASE EVENT DATE: 2017
